FAERS Safety Report 11745234 (Version 1)
Quarter: 2015Q4

REPORT INFORMATION
  Report Type: Report from Study
  Country: US (occurrence: US)
  Receive Date: 20151117
  Receipt Date: 20151117
  Transmission Date: 20160304
  Serious: No
  Sender: FDA-Public Use
  Company Number: PHEH2015US007079

PATIENT
  Age: 28 Year
  Sex: Male
  Weight: 68.3 kg

DRUGS (2)
  1. GLEEVEC [Suspect]
     Active Substance: IMATINIB MESYLATE
     Indication: BENIGN OVARIAN TUMOUR
     Dosage: 400 MG, QD
     Route: 048
  2. GLEEVEC [Suspect]
     Active Substance: IMATINIB MESYLATE
     Indication: LEUKAEMIA

REACTIONS (3)
  - Tonsillar inflammation [Unknown]
  - Toothache [Unknown]
  - Oral pain [Unknown]

NARRATIVE: CASE EVENT DATE: 20151101
